FAERS Safety Report 6453886-3 (Version None)
Quarter: 2009Q4

REPORT INFORMATION
  Report Type: 
  Country: None (occurrence: None)
  Receive Date: 20091124
  Receipt Date: 20091113
  Transmission Date: 20100525
  Serious: Yes (Hospitalization)
  Sender: FDA-Public Use
  Company Number: BR-PFIZER INC-2009217005

PATIENT
  Age: 15 Year
  Sex: Male
  Weight: 90 kg

DRUGS (2)
  1. VFEND [Suspect]
     Indication: BONE MARROW TRANSPLANT
     Dosage: 200 MG, UNK
     Route: 048
     Dates: start: 20090301
  2. VFEND [Suspect]
     Indication: FUNGAL INFECTION

REACTIONS (2)
  - PYREXIA [None]
  - TRANSPLANT [None]
